FAERS Safety Report 17806062 (Version 3)
Quarter: 2020Q3

REPORT INFORMATION
  Report Type: Spontaneous
  Country: AU (occurrence: AU)
  Receive Date: 20200520
  Receipt Date: 20200921
  Transmission Date: 20201102
  Serious: Yes (Other)
  Sender: FDA-Public Use
  Company Number: AU-ACCORD-182094

PATIENT
  Sex: Female

DRUGS (2)
  1. CROMOGLICIC ACID [Suspect]
     Active Substance: CROMOLYN
     Indication: MAST CELL ACTIVATION SYNDROME
  2. MONTELUKAST [Suspect]
     Active Substance: MONTELUKAST SODIUM
     Indication: MAST CELL ACTIVATION SYNDROME

REACTIONS (5)
  - Off label use [Unknown]
  - Diarrhoea [Recovering/Resolving]
  - Pruritus [Recovering/Resolving]
  - Wheezing [Recovering/Resolving]
  - Drug ineffective [Unknown]
